FAERS Safety Report 8854827 (Version 1)
Quarter: 2012Q4

REPORT INFORMATION
  Report Type: 
  Country: DE (occurrence: DE)
  Receive Date: 20121023
  Receipt Date: 20121023
  Transmission Date: 20130627
  Serious: Yes (Life-Threatening, Other)
  Sender: FDA-Public Use
  Company Number: DE-ELI_LILLY_AND_COMPANY-DE201210003000

PATIENT
  Sex: Female

DRUGS (4)
  1. CYMBALTA [Suspect]
  2. SEROQUEL [Concomitant]
  3. DOMINAL [Concomitant]
  4. LYRICA [Concomitant]

REACTIONS (7)
  - Blood sodium decreased [Unknown]
  - Suicide attempt [Unknown]
  - Syncope [Unknown]
  - Electrocardiogram QT prolonged [Unknown]
  - Disorientation [Unknown]
  - Tachycardia [Unknown]
  - Gastrointestinal sounds abnormal [Unknown]
